FAERS Safety Report 15697555 (Version 2)
Quarter: 2018Q4

REPORT INFORMATION
  Report Type: Report from Study
  Country: BR (occurrence: BR)
  Receive Date: 20181207
  Receipt Date: 20181222
  Transmission Date: 20190205
  Serious: Yes (Hospitalization, Other)
  Sender: FDA-Public Use
  Company Number: BR-ROCHE-2150871

PATIENT
  Sex: Male
  Weight: 83 kg

DRUGS (5)
  1. PREDNISONE. [Concomitant]
     Active Substance: PREDNISONE
     Indication: PAIN
     Route: 065
  2. ACTEMRA [Suspect]
     Active Substance: TOCILIZUMAB
     Indication: RHEUMATOID ARTHRITIS
     Dosage: MOSTR RECENT ON 01/MAR/2018.
     Route: 042
     Dates: start: 20160401
  3. TRAMAL [Concomitant]
     Active Substance: TRAMADOL
  4. PARACETAMOL/CODEINE [Concomitant]
     Active Substance: ACETAMINOPHEN\CODEINE PHOSPHATE
  5. DIPYRONE [Concomitant]
     Active Substance: DIPYRONE

REACTIONS (4)
  - Limb deformity [Recovering/Resolving]
  - Gait inability [Recovering/Resolving]
  - Hernia [Recovering/Resolving]
  - Arthropathy [Unknown]
